FAERS Safety Report 6575624-6 (Version None)
Quarter: 2010Q1

REPORT INFORMATION
  Report Type: 
  Country: None (occurrence: None)
  Receive Date: 20100209
  Receipt Date: 20100204
  Transmission Date: 20100710
  Serious: Yes (Hospitalization)
  Sender: FDA-Public Use
  Company Number: B0631818A

PATIENT
  Sex: Male

DRUGS (2)
  1. TOPOTECAN [Suspect]
     Indication: NEOPLASM
     Dosage: .75MGM2 PER DAY
     Route: 042
     Dates: start: 20100119, end: 20100123
  2. TEMOZOLOMIDE [Suspect]
     Indication: NEOPLASM
     Dosage: 150MGM2 PER DAY
     Route: 048
     Dates: start: 20100119, end: 20100123

REACTIONS (1)
  - GASTROENTERITIS [None]
